FAERS Safety Report 5162021-3 (Version None)
Quarter: 2006Q4

REPORT INFORMATION
  Report Type: 
  Country: None (occurrence: None)
  Receive Date: 20061121
  Receipt Date: 20061110
  Transmission Date: 20070319
  Serious: Yes (Other)
  Sender: FDA-Public Use
  Company Number: 2005S1009985

PATIENT
  Age: 4 Year
  Sex: Female

DRUGS (14)
  1. MERCAPTAMINE BITARTRATE (MERCAPTAMINE BITARTRATE) (150 MG) [Suspect]
     Indication: CYSTINOSIS
     Dosage: SEE IMAGE, ORAL
     Route: 048
     Dates: start: 20010717, end: 20020401
  2. MERCAPTAMINE BITARTRATE (MERCAPTAMINE BITARTRATE) (150 MG) [Suspect]
     Indication: CYSTINOSIS
     Dosage: SEE IMAGE, ORAL
     Route: 048
     Dates: start: 20020401, end: 20030901
  3. MERCAPTAMINE BITARTRATE (MERCAPTAMINE BITARTRATE) (150 MG) [Suspect]
     Indication: CYSTINOSIS
     Dosage: SEE IMAGE, ORAL
     Route: 048
     Dates: start: 20030901, end: 20040601
  4. MERCAPTAMINE BITARTRATE (MERCAPTAMINE BITARTRATE) (150 MG) [Suspect]
     Indication: CYSTINOSIS
     Dosage: SEE IMAGE, ORAL
     Route: 048
     Dates: start: 20040601, end: 20050501
  5. MERCAPTAMINE BITARTRATE (MERCAPTAMINE BITARTRATE) (150 MG) [Suspect]
     Indication: CYSTINOSIS
     Dosage: SEE IMAGE, ORAL
     Route: 048
     Dates: start: 20050501, end: 20051201
  6. MERCAPTAMINE BITARTRATE (MERCAPTAMINE BITARTRATE) (150 MG) [Suspect]
     Indication: CYSTINOSIS
     Dosage: SEE IMAGE, ORAL
     Route: 048
     Dates: start: 20051201, end: 20060701
  7. MERCAPTAMINE BITARTRATE (MERCAPTAMINE BITARTRATE) (150 MG) [Suspect]
     Indication: CYSTINOSIS
     Dosage: SEE IMAGE, ORAL
     Route: 048
     Dates: start: 20060701
  8. INDOMETHACIN [Concomitant]
  9. OMEPRAZOLE [Concomitant]
  10. POTASSIUM ACETATE [Concomitant]
  11. SODIUM BICARBONATE [Concomitant]
  12. L-CARNITINE [Concomitant]
  13. PHOSPHORIC ACID [Concomitant]
  14. CYSTEAMINE [Concomitant]

REACTIONS (7)
  - AMINO ACID LEVEL ABNORMAL [None]
  - ARTHRITIS [None]
  - CHONDROLYSIS [None]
  - FEMUR FRACTURE [None]
  - INJURY [None]
  - JOINT RANGE OF MOTION DECREASED [None]
  - OSTEOPENIA [None]
